FAERS Safety Report 13241057 (Version 1)
Quarter: 2017Q1

REPORT INFORMATION
  Report Type: Spontaneous
  Country: US (occurrence: US)
  Receive Date: 20170216
  Receipt Date: 20170216
  Transmission Date: 20170428
  Serious: No
  Sender: FDA-Public Use
  Company Number: US-RELYPSA-RLY2016004478

PATIENT
  Age: 72 Year
  Sex: Female

DRUGS (1)
  1. VELTASSA [Suspect]
     Active Substance: PATIROMER
     Indication: PRODUCT USED FOR UNKNOWN INDICATION
     Dosage: 8.4 G, QD
     Route: 065
     Dates: start: 20161102, end: 201612

REACTIONS (4)
  - Fall [Recovered/Resolved]
  - Back pain [Not Recovered/Not Resolved]
  - Back injury [Unknown]
  - Drug administration error [Unknown]

NARRATIVE: CASE EVENT DATE: 201612
